FAERS Safety Report 6550091-7 (Version None)
Quarter: 2010Q1

REPORT INFORMATION
  Report Type: 
  Country: None (occurrence: None)
  Receive Date: 20100119
  Receipt Date: 20100104
  Transmission Date: 20100710
  Serious: Yes (Death)
  Sender: FDA-Public Use
  Company Number: 2010-0166

PATIENT
  Sex: Female

DRUGS (1)
  1. APO GO AMPOULES (APO-GO) (APOMORPHINE HYDROCHLORIDE) (APOMORPHINE HYDR [Suspect]
     Indication: DRUG USE FOR UNKNOWN INDICATION

REACTIONS (1)
  - CEREBRAL INFARCTION [None]
